FAERS Safety Report 16738033 (Version 2)
Quarter: 2019Q3

REPORT INFORMATION
  Report Type: Spontaneous
  Country: HK (occurrence: HK)
  Receive Date: 20190824
  Receipt Date: 20190824
  Transmission Date: 20191005
  Serious: Yes (Life-Threatening, Hospitalization, Other)
  Sender: FDA-Public Use
  Company Number: PHHY2019HK193179

PATIENT
  Age: 53 Year
  Sex: Female

DRUGS (3)
  1. MYCOPHENOLATE MOFETIL. [Suspect]
     Active Substance: MYCOPHENOLATE MOFETIL
     Dosage: UNK
     Route: 065
  2. CICLOSPORIN [Suspect]
     Active Substance: CYCLOSPORINE
     Indication: MYOSITIS
     Dosage: UNK
     Route: 065
     Dates: start: 2011, end: 2012
  3. MYCOPHENOLATE MOFETIL. [Suspect]
     Active Substance: MYCOPHENOLATE MOFETIL
     Indication: MYOSITIS
     Dosage: UNK
     Route: 065
     Dates: start: 2009, end: 2012

REACTIONS (10)
  - Epstein-Barr virus infection [Unknown]
  - Oral candidiasis [Unknown]
  - Drug ineffective [Unknown]
  - Herpes zoster [Unknown]
  - Smooth muscle cell neoplasm [Unknown]
  - Pyrexia [Unknown]
  - Product use in unapproved indication [Unknown]
  - Epstein-Barr virus associated lymphoma [Unknown]
  - Status epilepticus [Unknown]
  - Pneumonia bacterial [Unknown]

NARRATIVE: CASE EVENT DATE: 2011
